FAERS Safety Report 19899078 (Version 1)
Quarter: 2021Q3

REPORT INFORMATION
  Report Type: Spontaneous
  Country: US (occurrence: US)
  Receive Date: 20210930
  Receipt Date: 20210930
  Transmission Date: 20211014
  Serious: Yes (Other)
  Sender: FDA-Public Use
  Company Number: US-SA-2021SA322166

PATIENT
  Age: 75 Year
  Sex: Female

DRUGS (2)
  1. IMBRUVICA [Suspect]
     Active Substance: IBRUTINIB
     Indication: CHRONIC LYMPHOCYTIC LEUKAEMIA (IN REMISSION)
     Dosage: UNK
     Route: 048
     Dates: start: 20160430
  2. MULTAQ [Suspect]
     Active Substance: DRONEDARONE
     Dosage: UNK

REACTIONS (10)
  - Swelling [Unknown]
  - Haemorrhage [Unknown]
  - Atrial fibrillation [Unknown]
  - Muscle strain [Unknown]
  - Blood iron abnormal [Unknown]
  - Pain [Unknown]
  - Stomatitis [Unknown]
  - Red blood cell count decreased [Unknown]
  - Feeling abnormal [Unknown]
  - Intentional product misuse [Unknown]

NARRATIVE: CASE EVENT DATE: 202105
